FAERS Safety Report 11838702 (Version 1)
Quarter: 2015Q4

REPORT INFORMATION
  Report Type: Spontaneous
  Country: US (occurrence: US)
  Receive Date: 20151215
  Receipt Date: 20151215
  Transmission Date: 20160305
  Serious: No
  Sender: FDA-Public Use
  Company Number: US-SA-2015SA196719

PATIENT
  Age: 65 Year
  Sex: Female
  Weight: 102.06 kg

DRUGS (1)
  1. TAXOTERE [Suspect]
     Active Substance: DOCETAXEL
     Indication: BREAST CANCER
     Route: 065

REACTIONS (9)
  - Feeling abnormal [Recovering/Resolving]
  - Paraesthesia [Not Recovered/Not Resolved]
  - Skin disorder [Unknown]
  - Hypoaesthesia [Unknown]
  - Alopecia [Recovering/Resolving]
  - Neuropathy peripheral [Unknown]
  - Nail disorder [Unknown]
  - Gait disturbance [Unknown]
  - Skin wrinkling [Unknown]

NARRATIVE: CASE EVENT DATE: 2010
